FAERS Safety Report 8196971-0 (Version None)
Quarter: 2012Q1

REPORT INFORMATION
  Report Type: 
  Country: None (occurrence: None)
  Receive Date: 20120309
  Receipt Date: 20120305
  Transmission Date: 20120608
  Serious: Yes (Other)
  Sender: FDA-Public Use
  Company Number: US-BAYER-201012383NA

PATIENT
  Age: 36 Year
  Sex: Female
  Weight: 113.64 kg

DRUGS (5)
  1. YASMIN [Suspect]
     Dosage: UNK
     Dates: start: 20041101, end: 20041129
  2. YASMIN [Suspect]
     Dosage: UNK
     Dates: start: 20060228, end: 20080613
  3. IBUPROFEN [Concomitant]
     Dates: start: 20040101, end: 20080101
  4. YASMIN [Suspect]
     Indication: CONTRACEPTION
     Route: 048
     Dates: start: 20040610, end: 20080701
  5. TRAMADOL HCL [Concomitant]
     Route: 065
     Dates: start: 20040101, end: 20080101

REACTIONS (8)
  - PAIN [None]
  - DEEP VEIN THROMBOSIS [None]
  - THROMBOSIS [None]
  - PAIN IN EXTREMITY [None]
  - OEDEMA PERIPHERAL [None]
  - FEELING HOT [None]
  - INJURY [None]
  - LIMB INJURY [None]
